FAERS Safety Report 5828001-7 (Version None)
Quarter: 2008Q3

REPORT INFORMATION
  Report Type: 
  Country: None (occurrence: None)
  Receive Date: 20080728
  Receipt Date: 20080710
  Transmission Date: 20090109
  Serious: Yes (Other)
  Sender: FDA-Public Use
  Company Number: OPER20080114

PATIENT
  Age: 46 Year
  Sex: Male

DRUGS (4)
  1. OPANA ER [Suspect]
     Indication: BACK PAIN
     Dosage: 20 MG, 1 TABLET BID, PER ORAL
     Route: 048
  2. OPANA ER [Suspect]
     Indication: BACK PAIN
     Dosage: 15 MG
  3. OXYCODONE HCL [Concomitant]
  4. LYRICA [Concomitant]

REACTIONS (3)
  - DRUG DIVERSION [None]
  - INTENTIONAL DRUG MISUSE [None]
  - WRONG TECHNIQUE IN DRUG USAGE PROCESS [None]
